FAERS Safety Report 23386214 (Version 2)
Quarter: 2024Q1

REPORT INFORMATION
  Report Type: Spontaneous
  Country: BE (occurrence: BE)
  Receive Date: 20240110
  Receipt Date: 20240321
  Transmission Date: 20240409
  Serious: Yes (Other)
  Sender: FDA-Public Use
  Company Number: BE-002147023-NVSC2023BE278788

PATIENT
  Age: 53 Year
  Sex: Female

DRUGS (5)
  1. XOLAIR [Suspect]
     Active Substance: OMALIZUMAB
     Indication: Urticaria
     Route: 065
  2. XOLAIR [Suspect]
     Active Substance: OMALIZUMAB
     Dosage: 3 DOSAGE FORM, EVERY 3 WEEKS
     Route: 065
  3. RUPATADINE [Concomitant]
     Active Substance: RUPATADINE
     Indication: Product used for unknown indication
     Dosage: UNK (6/DAY)
  4. MEDROL [Concomitant]
     Active Substance: METHYLPREDNISOLONE
     Indication: Product used for unknown indication
     Dosage: 24 MG, QD
  5. CETIRIZINE [Concomitant]
     Active Substance: CETIRIZINE HYDROCHLORIDE
     Indication: Product used for unknown indication
     Dosage: UNK (4/DAY)

REACTIONS (4)
  - Urticaria [Recovering/Resolving]
  - Urticarial vasculitis [Recovering/Resolving]
  - Glomerular filtration rate [Recovered/Resolved]
  - Blood creatinine abnormal [Recovered/Resolved]
